FAERS Safety Report 23659405 (Version 1)
Quarter: 2024Q1

REPORT INFORMATION
  Report Type: Spontaneous
  Country: US (occurrence: US)
  Receive Date: 20240321
  Receipt Date: 20240321
  Transmission Date: 20240410
  Serious: No
  Sender: FDA-Public Use
  Company Number: US-BRAEBURN-US-BRA-24-000122

PATIENT
  Sex: Female

DRUGS (2)
  1. BRIXADI [Suspect]
     Active Substance: BUPRENORPHINE
     Indication: Product used for unknown indication
     Dosage: 24 MILLIGRAM, WEEKLY(FIRST DOSE)
     Route: 065
     Dates: start: 202401, end: 2024
  2. BRIXADI [Suspect]
     Active Substance: BUPRENORPHINE
     Dosage: 32 MILLIGRAM, WEEKLY(SECOND DOSE)
     Route: 065
     Dates: start: 2024, end: 2024

REACTIONS (1)
  - Drug dependence [Unknown]

NARRATIVE: CASE EVENT DATE: 20240101
